FAERS Safety Report 8809822 (Version 2)
Quarter: 2012Q4

REPORT INFORMATION
  Report Type: Report from Study
  Country: DE (occurrence: DE)
  Receive Date: 20120926
  Receipt Date: 20121016
  Transmission Date: 20130627
  Serious: Yes (Death, Hospitalization)
  Sender: FDA-Public Use
  Company Number: DE-ACTELION-A-US2012-70418

PATIENT
  Age: 43 Year
  Sex: Female

DRUGS (2)
  1. VENTAVIS [Suspect]
     Indication: PULMONARY ARTERIAL HYPERTENSION
     Dosage: UNK
     Route: 055
     Dates: start: 20120719, end: 20120801
  2. CANAKINUMAB [Suspect]

REACTIONS (4)
  - Pulmonary arterial hypertension [Fatal]
  - Dyspnoea [Not Recovered/Not Resolved]
  - Pneumonitis [Recovering/Resolving]
  - Respiratory failure [Recovering/Resolving]
